FAERS Safety Report 8875706 (Version 2)
Quarter: 2012Q4

REPORT INFORMATION
  Report Type: 
  Country: US (occurrence: US)
  Receive Date: 20121023
  Receipt Date: 20121204
  Transmission Date: 20130627
  Serious: No
  Sender: FDA-Public Use
  Company Number: US-ASTRAZENECA-2012SE77859

PATIENT
  Age: 61 Year
  Sex: Female
  Weight: 108.9 kg

DRUGS (11)
  1. SYMBICORT [Suspect]
     Indication: ASTHMA
     Dosage: 160/4.5 MCG TWO TIMES A ADAY
     Route: 055
     Dates: start: 2009
  2. NEXIUM [Suspect]
     Indication: REFLUX GASTRITIS
     Route: 048
     Dates: start: 2005
  3. HYDROCHLOROTHIAZIDE [Suspect]
     Indication: BLOOD PRESSURE
     Route: 048
     Dates: start: 2002
  4. METOPROLOL TARTRATE [Suspect]
     Indication: BLOOD PRESSURE
     Route: 048
     Dates: start: 2007
  5. LEVOXYL [Concomitant]
     Indication: THYROID DISORDER
  6. NAPROSYN [Concomitant]
     Indication: ARTHRITIS
  7. HYDROCODONE [Concomitant]
     Indication: PAIN
  8. EFFEXOR [Concomitant]
     Indication: MENTAL DISORDER
  9. TRAZADONE [Concomitant]
     Indication: MENTAL DISORDER
  10. KLONIPIN [Concomitant]
     Indication: MENTAL DISORDER
  11. NAVANE [Concomitant]
     Indication: MENTAL DISORDER

REACTIONS (3)
  - Drug interaction [Unknown]
  - Peripheral coldness [Unknown]
  - Off label use [Unknown]
